FAERS Safety Report 12689755 (Version 1)
Quarter: 2016Q3

REPORT INFORMATION
  Report Type: Spontaneous
  Country: GB (occurrence: GB)
  Receive Date: 20160826
  Receipt Date: 20160826
  Transmission Date: 20161109
  Serious: Yes (Other)
  Sender: FDA-Public Use
  Company Number: GB-TEVA-685646ACC

PATIENT
  Age: 51 Year
  Sex: Male
  Weight: 76 kg

DRUGS (8)
  1. AMOXICILLIN. [Concomitant]
     Active Substance: AMOXICILLIN
     Dosage: 3 DOSAGE FORMS DAILY;
     Dates: start: 20160704, end: 20160711
  2. BUDESONIDE. [Concomitant]
     Active Substance: BUDESONIDE
     Dosage: USE AS DIRECTED
     Dates: start: 20130704, end: 20160704
  3. DUORESP SPIROMAX [Concomitant]
     Active Substance: BUDESONIDE\FORMOTEROL
     Dosage: 4 DOSAGE FORMS DAILY; TWO SUCKS, 4 DF DAILY
     Dates: start: 20160704
  4. ATORVASTATIN [Concomitant]
     Active Substance: ATORVASTATIN
     Dosage: 1 DOSAGE FORMS DAILY;
     Dates: start: 20140828
  5. SALBUTAMOL [Concomitant]
     Active Substance: ALBUTEROL
     Route: 055
     Dates: start: 20110208
  6. LERCANIDIPINE HYDROCHLORIDE [Concomitant]
     Active Substance: LERCANIDIPINE HYDROCHLORIDE
     Dosage: 1 DOSAGE FORMS DAILY;
     Dates: start: 20151019
  7. PREDNISOLONE. [Suspect]
     Active Substance: PREDNISOLONE
     Dates: start: 20160715
  8. RAMIPRIL. [Concomitant]
     Active Substance: RAMIPRIL
     Dosage: 1 DOSAGE FORMS DAILY;
     Dates: start: 20150105

REACTIONS (2)
  - Personality change [Recovered/Resolved]
  - Hallucination [Recovered/Resolved]

NARRATIVE: CASE EVENT DATE: 20160805
